FAERS Safety Report 6831432-X (Version None)
Quarter: 2010Q3

REPORT INFORMATION
  Report Type: 
  Country: None (occurrence: None)
  Receive Date: 20100712
  Receipt Date: 20100625
  Transmission Date: 20110219
  Serious: Yes (Hospitalization)
  Sender: FDA-Public Use
  Company Number: PHHY2010CH42281

PATIENT
  Age: 65 Year
  Sex: Female

DRUGS (17)
  1. ACLASTA [Suspect]
     Indication: OSTEOPOROSIS
     Dosage: 5 MG
     Route: 042
     Dates: start: 20090801
  2. AREDIA [Suspect]
     Indication: OSTEOPOROSIS
     Dosage: UNK
     Route: 042
     Dates: start: 20050101, end: 20070101
  3. FOSAMAX [Suspect]
     Indication: OSTEOPOROSIS
     Dosage: UNK
     Dates: start: 19970101, end: 20030101
  4. ACTONEL [Suspect]
     Indication: OSTEOPOROSIS
     Dosage: UNK
     Dates: start: 20030101, end: 20050101
  5. BONIVA [Suspect]
     Indication: OSTEOPOROSIS
     Dosage: UNK
     Route: 042
     Dates: start: 20070101, end: 20090101
  6. ATENOLOL [Concomitant]
     Dosage: 25 MG/D
  7. TORSEMIDE [Concomitant]
     Dosage: 2.5MG/D
  8. TAMOXIFEN [Concomitant]
     Dosage: 20 MG/D
  9. PARLODEL [Concomitant]
     Dosage: 5 MG/D
  10. REMERON [Concomitant]
     Dosage: 30 MG/D
  11. TRUXAL [Concomitant]
     Dosage: 15 MG/D
  12. ROHYPNOL [Concomitant]
     Dosage: 1 MG/D
  13. DURAGESIC-100 [Concomitant]
     Dosage: UNK
  14. CALCIMAGON [Concomitant]
     Dosage: 1 DOSAGE FORM/DAY
  15. MORPHINE [Concomitant]
     Dosage: 6 GTT/DAY
     Route: 048
  16. LORAZEPAM [Concomitant]
     Dosage: 1 MG/D
  17. LAXOBERON [Concomitant]
     Dosage: UNK

REACTIONS (3)
  - ORAL SURGERY [None]
  - OSTEONECROSIS OF JAW [None]
  - PAIN IN JAW [None]
